FAERS Safety Report 16812133 (Version 1)
Quarter: 2019Q3

REPORT INFORMATION
  Report Type: Spontaneous
  Country: US (occurrence: US)
  Receive Date: 20190916
  Receipt Date: 20190916
  Transmission Date: 20191005
  Serious: No
  Sender: FDA-Public Use
  Company Number: US-VIVUS, INC.-2019V1001005

PATIENT
  Age: 39 Year
  Sex: Female
  Weight: 68.1 kg

DRUGS (2)
  1. QSYMIA [Suspect]
     Active Substance: PHENTERMINE HYDROCHLORIDE\TOPIRAMATE
     Route: 048
     Dates: start: 20190422
  2. QSYMIA [Suspect]
     Active Substance: PHENTERMINE HYDROCHLORIDE\TOPIRAMATE
     Indication: WEIGHT DECREASED
     Route: 048
     Dates: start: 20190401

REACTIONS (8)
  - Dry mouth [Not Recovered/Not Resolved]
  - Paraesthesia [Not Recovered/Not Resolved]
  - Vision blurred [Recovered/Resolved]
  - Product administration interrupted [Recovered/Resolved]
  - Headache [Recovered/Resolved]
  - Hypoaesthesia [Not Recovered/Not Resolved]
  - Insomnia [Recovered/Resolved]
  - Nervousness [Recovered/Resolved]

NARRATIVE: CASE EVENT DATE: 20190422
